FAERS Safety Report 8318426-2 (Version None)
Quarter: 2012Q2

REPORT INFORMATION
  Report Type: 
  Country: None (occurrence: None)
  Receive Date: 20120427
  Receipt Date: 20120418
  Transmission Date: 20120825
  Serious: Yes (Other)
  Sender: FDA-Public Use
  Company Number: US-GLAXOSMITHKLINE-A0880511A

PATIENT
  Age: 61 Year
  Sex: Female

DRUGS (4)
  1. ARIXTRA [Suspect]
     Indication: COAGULOPATHY
     Dosage: 2.5MG PER DAY
     Route: 058
  2. FOLIC ACID [Concomitant]
  3. IRON [Concomitant]
  4. VITAMIN B-12 [Concomitant]

REACTIONS (4)
  - INCORRECT STORAGE OF DRUG [None]
  - MEMORY IMPAIRMENT [None]
  - DRUG INEFFECTIVE [None]
  - DEEP VEIN THROMBOSIS [None]
